FAERS Safety Report 13363353 (Version 4)
Quarter: 2017Q2

REPORT INFORMATION
  Report Type: Report from Study
  Country: CA (occurrence: CA)
  Receive Date: 20170323
  Receipt Date: 20170613
  Transmission Date: 20170830
  Serious: Yes (Hospitalization, Other)
  Sender: FDA-Public Use
  Company Number: CA-TAKEDA-2017TUS005520

PATIENT
  Age: 46 Year
  Sex: Female

DRUGS (6)
  1. IMIPRAMINE [Concomitant]
     Active Substance: IMIPRAMINE
     Indication: FREQUENT BOWEL MOVEMENTS
  2. TYLENOL [Concomitant]
     Active Substance: ACETAMINOPHEN
     Indication: PAIN
     Dosage: UNK
  3. VEDOLIZUMAB [Suspect]
     Active Substance: VEDOLIZUMAB
     Indication: CROHN^S DISEASE
     Dosage: 300 MG, UNK
     Route: 042
     Dates: start: 20160819, end: 20170309
  4. DIANE (CYPROTERONE ACETATE\ETHINYL ESTRADIOL) [Concomitant]
     Active Substance: CYPROTERONE ACETATE\ETHINYL ESTRADIOL
     Indication: CONTRACEPTION
     Dosage: UNK
  5. IMIPRAMINE [Concomitant]
     Active Substance: IMIPRAMINE
     Indication: DEPRESSION
     Dosage: 10 MG, UNK
  6. IMIPRAMINE [Concomitant]
     Active Substance: IMIPRAMINE
     Indication: FREQUENT BOWEL MOVEMENTS

REACTIONS (2)
  - Intestinal obstruction [Recovered/Resolved]
  - Drug ineffective [Unknown]

NARRATIVE: CASE EVENT DATE: 201702
